FAERS Safety Report 10514101 (Version 1)
Quarter: 2014Q4

REPORT INFORMATION
  Report Type: Spontaneous
  Country: US (occurrence: US)
  Receive Date: 20141013
  Receipt Date: 20141013
  Transmission Date: 20150528
  Serious: Yes (Death, Other)
  Sender: FDA-Public Use
  Company Number: US-ASPEN PHARMA TRADING LIMITED US-AG-2014-006353

PATIENT
  Age: 27 Year
  Sex: Male
  Weight: 149.82 kg

DRUGS (2)
  1. TORADOL [Suspect]
     Active Substance: KETOROLAC TROMETHAMINE
     Indication: PRODUCT USED FOR UNKNOWN INDICATION
     Route: 065
  2. ARIXTRA [Suspect]
     Active Substance: FONDAPARINUX SODIUM
     Indication: PRODUCT USED FOR UNKNOWN INDICATION
     Route: 058
     Dates: start: 20111117, end: 20111117

REACTIONS (6)
  - Haematemesis [Unknown]
  - Sepsis [None]
  - Procedural complication [None]
  - Haemorrhage [Fatal]
  - Arrhythmia [Fatal]
  - Medication error [Unknown]

NARRATIVE: CASE EVENT DATE: 20111118
